FAERS Safety Report 18294385 (Version 5)
Quarter: 2021Q1

REPORT INFORMATION
  Report Type: Report from Study
  Country: US (occurrence: US)
  Receive Date: 20200922
  Receipt Date: 20210215
  Transmission Date: 20210419
  Serious: Yes (Hospitalization)
  Sender: FDA-Public Use
  Company Number: US-GLAXOSMITHKLINE-US2020TSO010207

PATIENT
  Sex: Female
  Weight: 96.6 kg

DRUGS (10)
  1. NIRAPARIB [Suspect]
     Active Substance: NIRAPARIB
     Dosage: 200 MG, QD
  2. NIRAPARIB [Suspect]
     Active Substance: NIRAPARIB
     Dosage: 200 MG, QD
  3. NIRAPARIB [Suspect]
     Active Substance: NIRAPARIB
     Dosage: 200 MG, QD
     Dates: start: 20200902
  4. NIRAPARIB [Suspect]
     Active Substance: NIRAPARIB
     Dosage: 200 MG, QD
     Dates: end: 20210204
  5. NIRAPARIB [Suspect]
     Active Substance: NIRAPARIB
     Indication: OVARIAN CANCER
     Dosage: 300 MG, QD
     Route: 048
     Dates: start: 20191220
  6. NIRAPARIB [Suspect]
     Active Substance: NIRAPARIB
     Dosage: 300 MG, QD  (EVERY DAY)
     Route: 048
     Dates: start: 20200209
  7. NIRAPARIB [Suspect]
     Active Substance: NIRAPARIB
     Dosage: 100 MG
  8. NIRAPARIB [Suspect]
     Active Substance: NIRAPARIB
     Dosage: 200 MG, QD
  9. NIRAPARIB [Suspect]
     Active Substance: NIRAPARIB
     Dosage: 200 MG, QD
     Route: 048
  10. NIRAPARIB [Suspect]
     Active Substance: NIRAPARIB
     Dosage: 100 MG

REACTIONS (23)
  - Chest pain [Unknown]
  - Eructation [Unknown]
  - Salivary hypersecretion [Not Recovered/Not Resolved]
  - Gastrooesophageal reflux disease [Unknown]
  - Gastrointestinal motility disorder [Unknown]
  - Weight decreased [Recovered/Resolved]
  - Decreased appetite [Unknown]
  - Dizziness [Not Recovered/Not Resolved]
  - Blood pressure decreased [Unknown]
  - Product dose omission issue [Unknown]
  - General physical health deterioration [Unknown]
  - Flatulence [Unknown]
  - Pain [Unknown]
  - Platelet count decreased [Unknown]
  - Constipation [Unknown]
  - Haemoglobin decreased [Unknown]
  - Carbohydrate antigen 125 increased [Unknown]
  - Drug ineffective [Unknown]
  - Disease progression [Unknown]
  - Abdominal distension [Not Recovered/Not Resolved]
  - Fatigue [Not Recovered/Not Resolved]
  - Red blood cell count decreased [Unknown]
  - Incorrect dose administered [Unknown]
